FAERS Safety Report 19141070 (Version 2)
Quarter: 2021Q2

REPORT INFORMATION
  Report Type: Spontaneous
  Country: JP (occurrence: JP)
  Receive Date: 20210415
  Receipt Date: 20210424
  Transmission Date: 20210717
  Serious: Yes (Hospitalization, Other)
  Sender: FDA-Public Use
  Company Number: JP-JNJFOC-20210424963

PATIENT
  Sex: Male

DRUGS (5)
  1. CLOPIDOGREL [Suspect]
     Active Substance: CLOPIDOGREL BISULFATE
     Indication: CORONARY ARTERIAL STENT INSERTION
     Route: 048
  2. BAYASPIRIN [Suspect]
     Active Substance: ASPIRIN
     Indication: CORONARY ARTERIAL STENT INSERTION
     Dosage: UNK
     Route: 048
  3. CANDESARTAN. [Concomitant]
     Active Substance: CANDESARTAN
     Route: 048
  4. CARVEDILOL. [Concomitant]
     Active Substance: CARVEDILOL
     Route: 048
  5. RIVAROXABAN [Suspect]
     Active Substance: RIVAROXABAN
     Indication: PRODUCT USED FOR UNKNOWN INDICATION
     Dosage: UNK
     Route: 048

REACTIONS (10)
  - Cold sweat [Unknown]
  - Anaemia [Unknown]
  - Blood pressure decreased [Unknown]
  - Labelled drug-drug interaction medication error [Unknown]
  - Bradycardia [Unknown]
  - Depressed level of consciousness [Unknown]
  - Gastrointestinal haemorrhage [Unknown]
  - Atrioventricular block complete [Unknown]
  - Faeces discoloured [Unknown]
  - Vomiting [Unknown]

NARRATIVE: CASE EVENT DATE: 202012
